FAERS Safety Report 7448982-8 (Version None)
Quarter: 2011Q2

REPORT INFORMATION
  Report Type: 
  Country: None (occurrence: None)
  Receive Date: 20110429
  Receipt Date: 20110421
  Transmission Date: 20111010
  Serious: Yes (Hospitalization, Disabling, Other)
  Sender: FDA-Public Use
  Company Number: US-MERCK-0911USA03514

PATIENT
  Age: 50 Year
  Sex: Female
  Weight: 86 kg

DRUGS (7)
  1. FOSAMAX [Suspect]
     Route: 048
     Dates: start: 20010307, end: 20061205
  2. LOZOL [Concomitant]
     Route: 065
     Dates: start: 19950701
  3. FOSAMAX [Suspect]
     Indication: OSTEOPOROSIS
     Route: 048
     Dates: start: 19950901, end: 20010301
  4. FOSAMAX [Suspect]
     Indication: STRESS FRACTURE
     Route: 048
     Dates: start: 19950901, end: 20010301
  5. FOSAMAX [Suspect]
     Route: 048
     Dates: start: 20010307, end: 20061205
  6. XANAX [Concomitant]
     Indication: ANXIETY
     Route: 048
     Dates: start: 19830101
  7. PREMARIN [Concomitant]
     Route: 065
     Dates: start: 19950101

REACTIONS (80)
  - FEMUR FRACTURE [None]
  - NAUSEA [None]
  - LUMBAR VERTEBRAL FRACTURE [None]
  - DEPRESSION [None]
  - CATARACT [None]
  - LOSS OF CONSCIOUSNESS [None]
  - FIBULA FRACTURE [None]
  - EYELID DISORDER [None]
  - POST PROCEDURAL HAEMORRHAGE [None]
  - DEVICE FAILURE [None]
  - ABSCESS [None]
  - INTERVERTEBRAL DISC DEGENERATION [None]
  - FORMICATION [None]
  - SYNCOPE [None]
  - UTERINE LEIOMYOMA [None]
  - TOOTH DISORDER [None]
  - MUSCULAR WEAKNESS [None]
  - GINGIVAL BLEEDING [None]
  - ANAEMIA [None]
  - BACK DISORDER [None]
  - LUMBAR SPINAL STENOSIS [None]
  - LACERATION [None]
  - PROCEDURAL HYPOTENSION [None]
  - PAIN IN EXTREMITY [None]
  - OBESITY [None]
  - TENDONITIS [None]
  - PLANTAR FASCIITIS [None]
  - MORTON'S NEUROMA [None]
  - PAIN [None]
  - SPONDYLOLISTHESIS [None]
  - MUSCULOSKELETAL PAIN [None]
  - MUSCULOSKELETAL DISCOMFORT [None]
  - HYPERLIPIDAEMIA [None]
  - HEAD INJURY [None]
  - BACK PAIN [None]
  - BONE DISORDER [None]
  - FRACTURE NONUNION [None]
  - ROTATOR CUFF SYNDROME [None]
  - RENAL FAILURE [None]
  - EXOSTOSIS [None]
  - BURSITIS [None]
  - SINUSITIS [None]
  - ACARODERMATITIS [None]
  - VERTIGO [None]
  - TOOTH FRACTURE [None]
  - HYPOAESTHESIA [None]
  - HYPERCHOLESTEROLAEMIA [None]
  - GAIT DISTURBANCE [None]
  - EATING DISORDER [None]
  - DYSPNOEA [None]
  - ANXIETY [None]
  - ANAEMIA POSTOPERATIVE [None]
  - LOW TURNOVER OSTEOPATHY [None]
  - SPINAL CORD COMPRESSION [None]
  - ADVERSE DRUG REACTION [None]
  - NECK INJURY [None]
  - ROAD TRAFFIC ACCIDENT [None]
  - BALANCE DISORDER [None]
  - JOINT SPRAIN [None]
  - FALL [None]
  - HYPERTENSION [None]
  - HYPERHIDROSIS [None]
  - HYPOTHYROIDISM [None]
  - TYPE 1 DIABETES MELLITUS [None]
  - TRANSIENT ISCHAEMIC ATTACK [None]
  - ONYCHOLYSIS [None]
  - SPINAL OSTEOARTHRITIS [None]
  - AGITATION [None]
  - GLAUCOMA [None]
  - FOOT FRACTURE [None]
  - BLOOD PRESSURE ABNORMAL [None]
  - BACK INJURY [None]
  - ARTHRITIS [None]
  - INTERVERTEBRAL DISC PROTRUSION [None]
  - COUGH [None]
  - ARTHRALGIA [None]
  - RESTLESS LEGS SYNDROME [None]
  - HYPERSENSITIVITY [None]
  - EYE DISORDER [None]
  - BLOOD URINE PRESENT [None]
